FAERS Safety Report 24986644 (Version 2)
Quarter: 2025Q1

REPORT INFORMATION
  Report Type: Spontaneous
  Country: US (occurrence: US)
  Receive Date: 20250219
  Receipt Date: 20250225
  Transmission Date: 20250409
  Serious: No
  Sender: AMGEN
  Company Number: US-AMGEN-USASP2025031940

PATIENT
  Age: 50 Year
  Sex: Female

DRUGS (1)
  1. EVENITY [Suspect]
     Active Substance: ROMOSOZUMAB-AQQG
     Indication: Osteoporosis
     Dosage: UNK, QMO (STANDARD DOSE OF 2 SYRINGES)
     Route: 065
     Dates: start: 202407, end: 202411

REACTIONS (5)
  - Eye pain [Not Recovered/Not Resolved]
  - Skin burning sensation [Recovered/Resolved]
  - Rosacea [Recovered/Resolved]
  - Dry eye [Not Recovered/Not Resolved]
  - Feeling abnormal [Unknown]

NARRATIVE: CASE EVENT DATE: 20240901
